FAERS Safety Report 6125295-8 (Version None)
Quarter: 2009Q1

REPORT INFORMATION
  Report Type: 
  Country: None (occurrence: None)
  Receive Date: 20090319
  Receipt Date: 20090319
  Transmission Date: 20090719
  Serious: Yes (Other)
  Sender: FDA-Public Use
  Company Number: None

PATIENT
  Sex: Female

DRUGS (2)
  1. ZOLPIDEM [Suspect]
     Indication: EPILEPSY
     Dosage: 10 MG
     Dates: start: 20080901, end: 20090301
  2. ZOLPIDEM [Suspect]
     Indication: INSOMNIA
     Dosage: 10 MG
     Dates: start: 20080901, end: 20090301

REACTIONS (1)
  - DRUG INEFFECTIVE [None]
